FAERS Safety Report 5210460-4 (Version None)
Quarter: 2007Q1

REPORT INFORMATION
  Report Type: 
  Country: None (occurrence: None)
  Receive Date: 20070117
  Receipt Date: 20070106
  Transmission Date: 20070707
  Serious: Yes (Hospitalization)
  Sender: FDA-Public Use
  Company Number: PHBS2007IN00637

PATIENT
  Age: 73 Year
  Sex: Male

DRUGS (9)
  1. EXELON [Suspect]
     Indication: DEMENTIA ALZHEIMER'S TYPE
     Dosage: 1.5 MG/D
     Route: 048
  2. EXELON [Suspect]
     Dosage: 3 MG/D
     Route: 048
  3. EXELON [Suspect]
     Dosage: 4.5 MG/D
     Route: 048
  4. EXELON [Suspect]
     Dosage: 6 MG/D
     Route: 048
  5. EXELON [Suspect]
     Dosage: 4.5 MG/D
     Route: 048
  6. METFORMIN HYDROCHLORIDE [Concomitant]
     Route: 065
  7. CARDACE [Concomitant]
     Route: 067
  8. AMARYL [Concomitant]
     Route: 065
  9. ECOSPRIN [Concomitant]
     Route: 065

REACTIONS (3)
  - DYSTONIA [None]
  - HYPERHIDROSIS [None]
  - LOSS OF CONSCIOUSNESS [None]
